FAERS Safety Report 4861165-0 (Version None)
Quarter: 2005Q4

REPORT INFORMATION
  Report Type: 
  Country: None (occurrence: None)
  Receive Date: 20051216
  Receipt Date: 20051122
  Transmission Date: 20060501
  Serious: Yes (Hospitalization, Other)
  Sender: FDA-Public Use
  Company Number: 200510859BVD

PATIENT
  Age: 71 Year
  Sex: Male
  Weight: 80 kg

DRUGS (4)
  1. CIPROFLOXACIN [Suspect]
     Indication: PNEUMONIA
     Dates: start: 20050718, end: 20050722
  2. SELECTOL [Concomitant]
  3. AQUAPHOR TABLET [Concomitant]
  4. KALINOR [Concomitant]

REACTIONS (23)
  - APLASTIC ANAEMIA [None]
  - ASTHENIA [None]
  - BARRETT'S OESOPHAGUS [None]
  - BLOOD CREATININE INCREASED [None]
  - COLONIC POLYP [None]
  - COLONOSCOPY ABNORMAL [None]
  - CYST [None]
  - DIFFICULTY IN WALKING [None]
  - DIVERTICULUM [None]
  - GASTRITIS [None]
  - HEPATIC STEATOSIS [None]
  - HIATUS HERNIA [None]
  - HYPERTROPHIC ANAL PAPILLA [None]
  - MARROW HYPERPLASIA [None]
  - MUCOUS MEMBRANE DISORDER [None]
  - MYELOPATHY [None]
  - NORMOCHROMIC NORMOCYTIC ANAEMIA [None]
  - POLYP [None]
  - PYREXIA [None]
  - RED BLOOD CELL SEDIMENTATION RATE INCREASED [None]
  - RENAL FAILURE [None]
  - RENAL SCAN ABNORMAL [None]
  - SERUM FERRITIN INCREASED [None]
